FAERS Safety Report 11802198 (Version 1)
Quarter: 2015Q4

REPORT INFORMATION
  Report Type: Spontaneous
  Country: CN (occurrence: CN)
  Receive Date: 20151204
  Receipt Date: 20151204
  Transmission Date: 20160305
  Serious: Yes (Hospitalization)
  Sender: FDA-Public Use
  Company Number: CN-PFIZER INC-2015423017

PATIENT
  Age: 63 Year
  Sex: Female

DRUGS (10)
  1. CELEBREX [Suspect]
     Active Substance: CELECOXIB
     Indication: PAIN
  2. DEXAMETHASONE. [Concomitant]
     Active Substance: DEXAMETHASONE
     Indication: INTERVERTEBRAL DISC PROTRUSION
     Dosage: 10 MG, 1X/DAY
     Route: 041
  3. MANNITOL. [Concomitant]
     Active Substance: MANNITOL
     Indication: PAIN
  4. LANSOPRAZOLE. [Concomitant]
     Active Substance: LANSOPRAZOLE
     Indication: INTERVERTEBRAL DISC PROTRUSION
     Dosage: 30 MG, 1X/DAY
     Route: 041
  5. NORMAL SALINE [Concomitant]
     Active Substance: SODIUM CHLORIDE
     Indication: INTERVERTEBRAL DISC PROTRUSION
     Route: 041
  6. DEXAMETHASONE. [Concomitant]
     Active Substance: DEXAMETHASONE
     Indication: PAIN
  7. CELEBREX [Suspect]
     Active Substance: CELECOXIB
     Indication: INTERVERTEBRAL DISC PROTRUSION
     Dosage: 0.2 G, 2X/DAY
     Route: 048
     Dates: start: 20130217, end: 20130226
  8. MANNITOL. [Concomitant]
     Active Substance: MANNITOL
     Indication: INTERVERTEBRAL DISC PROTRUSION
     Dosage: 125 ML, 1X/DAY
     Route: 041
     Dates: start: 20130220, end: 20130226
  9. NORMAL SALINE [Concomitant]
     Active Substance: SODIUM CHLORIDE
     Indication: PAIN
  10. LANSOPRAZOLE. [Concomitant]
     Active Substance: LANSOPRAZOLE
     Indication: PAIN

REACTIONS (4)
  - Pruritus [Recovered/Resolved]
  - Poor quality sleep [Recovered/Resolved]
  - Rash [Recovered/Resolved]
  - Erythema [Recovered/Resolved]

NARRATIVE: CASE EVENT DATE: 20130301
